FAERS Safety Report 6630235-9 (Version None)
Quarter: 2010Q1

REPORT INFORMATION
  Report Type: 
  Country: None (occurrence: None)
  Receive Date: 20100311
  Receipt Date: 20100308
  Transmission Date: 20100710
  Serious: Yes (Death, Hospitalization)
  Sender: FDA-Public Use
  Company Number: A0849367A

PATIENT
  Age: 46 Year
  Sex: Male
  Weight: 113.6 kg

DRUGS (1)
  1. AVANDIA [Suspect]
     Indication: TYPE 2 DIABETES MELLITUS
     Route: 048

REACTIONS (6)
  - ANXIETY [None]
  - CARDIAC FAILURE CONGESTIVE [None]
  - DEATH [None]
  - ECONOMIC PROBLEM [None]
  - MULTIPLE INJURIES [None]
  - PAIN [None]
